FAERS Safety Report 18629664 (Version 1)
Quarter: 2020Q4

REPORT INFORMATION
  Report Type: Report from Study
  Country: MX (occurrence: MX)
  Receive Date: 20201217
  Receipt Date: 20201217
  Transmission Date: 20210114
  Serious: Yes (Other)
  Sender: FDA-Public Use
  Company Number: MX-SEATTLE GENETICS-2020SGN04055

PATIENT
  Sex: Female

DRUGS (1)
  1. BRENTUXIMAB VEDOTIN [Suspect]
     Active Substance: BRENTUXIMAB VEDOTIN
     Indication: HODGKIN^S DISEASE
     Dosage: 113 MILLIGRAM
     Route: 042
     Dates: start: 20200814, end: 20201214

REACTIONS (6)
  - Pyrexia [Unknown]
  - Chills [Unknown]
  - Pruritus [Unknown]
  - Urticaria [Unknown]
  - Hodgkin^s disease [Unknown]
  - Tremor [Unknown]
